FAERS Safety Report 5893198-X (Version None)
Quarter: 2008Q3

REPORT INFORMATION
  Report Type: 
  Country: None (occurrence: None)
  Receive Date: 20080923
  Receipt Date: 20070801
  Transmission Date: 20090109
  Serious: No
  Sender: FDA-Public Use
  Company Number: US-ASTRAZENECA-2007UW18513

PATIENT
  Sex: Female

DRUGS (2)
  1. SEROQUEL [Suspect]
     Indication: ANXIETY
     Route: 048
  2. HYDROPROPION BROMIDE [Concomitant]

REACTIONS (3)
  - DYSPHONIA [None]
  - LUNG DISORDER [None]
  - THROAT IRRITATION [None]
